FAERS Safety Report 19161497 (Version 2)
Quarter: 2021Q2

REPORT INFORMATION
  Report Type: Spontaneous
  Country: DE (occurrence: DE)
  Receive Date: 20210421
  Receipt Date: 20210525
  Transmission Date: 20210717
  Serious: Yes (Other)
  Sender: FDA-Public Use
  Company Number: DE-CELLTRION INC.-2021DE003307

PATIENT

DRUGS (4)
  1. REMSIMA [Suspect]
     Active Substance: INFLIXIMAB
     Indication: EPISCLERITIS
  2. REMSIMA [Suspect]
     Active Substance: INFLIXIMAB
     Indication: RHEUMATOID ARTHRITIS
     Dosage: 120 MG, EVERY 14 DAYS
     Route: 058
     Dates: start: 202104
  3. REMSIMA [Suspect]
     Active Substance: INFLIXIMAB
     Indication: EPISCLERITIS
  4. REMSIMA [Suspect]
     Active Substance: INFLIXIMAB
     Indication: RHEUMATOID ARTHRITIS
     Dosage: 400MG, EVERY 8?10 WEEKS
     Route: 042
     Dates: start: 201403, end: 202104

REACTIONS (5)
  - Disease recurrence [Unknown]
  - Ulcerative keratitis [Unknown]
  - Off label use [Unknown]
  - Episcleritis [Recovering/Resolving]
  - Iritis [Recovering/Resolving]

NARRATIVE: CASE EVENT DATE: 202008
